FAERS Safety Report 13077422 (Version 1)
Quarter: 2016Q4

REPORT INFORMATION
  Report Type: Report from Study
  Country: US (occurrence: US)
  Receive Date: 20161230
  Receipt Date: 20161230
  Transmission Date: 20170207
  Serious: No
  Sender: FDA-Public Use
  Company Number: US-AMGEN-USASL2016157700

PATIENT
  Sex: Female
  Weight: 3.57 kg

DRUGS (2)
  1. ENBREL [Suspect]
     Active Substance: ETANERCEPT
     Indication: EXPOSURE DURING BREAST FEEDING
     Dosage: 50 MG, QWK
     Route: 064
     Dates: start: 2008, end: 201503
  2. ENBREL [Suspect]
     Active Substance: ETANERCEPT
     Dosage: 50 MG, QWK
     Route: 063
     Dates: start: 2016

REACTIONS (2)
  - Breech presentation [Recovered/Resolved]
  - Breast feeding [Unknown]

NARRATIVE: CASE EVENT DATE: 2016
